FAERS Safety Report 6041214-7 (Version None)
Quarter: 2009Q1

REPORT INFORMATION
  Report Type: 
  Country: None (occurrence: None)
  Receive Date: 20090116
  Receipt Date: 20080917
  Transmission Date: 20090719
  Serious: No
  Sender: FDA-Public Use
  Company Number: US-BRISTOL-MYERS SQUIBB COMPANY-14338339

PATIENT
  Age: 54 Year
  Sex: Female
  Weight: 91 kg

DRUGS (11)
  1. ABILIFY [Suspect]
     Indication: NEGATIVE THOUGHTS
     Dosage: DISCONTINUED ON MAY OR JUNE 2008
     Dates: end: 20080101
  2. GLUCOPHAGE [Concomitant]
  3. CLARITIN [Concomitant]
  4. MULTI-VITAMIN [Concomitant]
  5. RISPERDAL [Concomitant]
  6. ALDACTONE [Concomitant]
  7. DONNATAL [Concomitant]
  8. TYLENOL (CAPLET) [Concomitant]
  9. SEROQUEL [Concomitant]
  10. LIPITOR [Concomitant]
  11. KLONOPIN [Concomitant]

REACTIONS (2)
  - DRUG INEFFECTIVE [None]
  - DYSPHAGIA [None]
